FAERS Safety Report 13940115 (Version 1)
Quarter: 2017Q3

REPORT INFORMATION
  Report Type: Spontaneous
  Country: US (occurrence: US)
  Receive Date: 20170906
  Receipt Date: 20170906
  Transmission Date: 20171127
  Serious: Yes (Hospitalization, Other)
  Sender: FDA-Public Use
  Company Number: US-BAYER-2017-110506

PATIENT
  Age: 60 Year
  Sex: Male

DRUGS (5)
  1. LOVENOX [Suspect]
     Active Substance: ENOXAPARIN SODIUM
     Indication: PRODUCT USED FOR UNKNOWN INDICATION
     Dosage: 120 MG, UNK
     Route: 058
     Dates: start: 201405, end: 201405
  2. COUMADIN [Suspect]
     Active Substance: WARFARIN SODIUM
     Indication: PRODUCT USED FOR UNKNOWN INDICATION
     Dosage: 5 MG, QD
     Route: 048
     Dates: start: 201405
  3. XARELTO [Suspect]
     Active Substance: RIVAROXABAN
     Indication: DEEP VEIN THROMBOSIS
     Dosage: UNK
     Route: 048
     Dates: start: 201405, end: 20140529
  4. XARELTO [Suspect]
     Active Substance: RIVAROXABAN
     Indication: PULMONARY EMBOLISM
     Dosage: UNK
     Route: 048
     Dates: start: 20140429, end: 201405
  5. ACETYLSALICYLIC ACID({=100 MG) [Suspect]
     Active Substance: ASPIRIN
     Indication: PRODUCT USED FOR UNKNOWN INDICATION
     Dosage: 81 MG, QD
     Route: 048

REACTIONS (4)
  - Haemorrhage [Unknown]
  - Contusion [Unknown]
  - Epistaxis [Recovering/Resolving]
  - Mouth haemorrhage [Unknown]

NARRATIVE: CASE EVENT DATE: 2014
